FAERS Safety Report 10399295 (Version 1)
Quarter: 2014Q3

REPORT INFORMATION
  Report Type: Spontaneous
  Country: US (occurrence: US)
  Receive Date: 20140821
  Receipt Date: 20140821
  Transmission Date: 20150326
  Serious: Yes (Death, Hospitalization, Other)
  Sender: FDA-Public Use
  Company Number: US-B.I. PHARMACEUTICALS,INC./RIDGEFIELD-2014-BI-37652BP

PATIENT
  Age: 80 Year
  Sex: Male

DRUGS (9)
  1. PROPAFENONE. [Concomitant]
     Active Substance: PROPAFENONE
     Route: 065
  2. DUONEB [Concomitant]
     Active Substance: ALBUTEROL SULFATE\IPRATROPIUM BROMIDE
     Route: 065
  3. PRADAXA [Suspect]
     Active Substance: DABIGATRAN ETEXILATE MESYLATE
     Indication: ATRIAL FIBRILLATION
     Dosage: 300 MG
     Route: 065
  4. LISINOPRIL. [Concomitant]
     Active Substance: LISINOPRIL
     Dosage: 2.5 MG
     Route: 065
  5. JANUVIA [Concomitant]
     Active Substance: SITAGLIPTIN PHOSPHATE
     Dosage: 10 MG
     Route: 065
  6. LEVAQUIN [Concomitant]
     Active Substance: LEVOFLOXACIN
     Dosage: 500 MG
     Route: 065
  7. PERCOCET [Concomitant]
     Active Substance: ACETAMINOPHEN\OXYCODONE HYDROCHLORIDE
     Route: 065
  8. TRIAMCINOLONE [Concomitant]
     Active Substance: TRIAMCINOLONE
     Route: 061
  9. THEO-DUR [Concomitant]
     Active Substance: THEOPHYLLINE
     Dosage: 400 MG
     Route: 065

REACTIONS (6)
  - Hypotension [Unknown]
  - Ecchymosis [Unknown]
  - Coagulopathy [Unknown]
  - Renal failure acute [Unknown]
  - Lobar pneumonia [Unknown]
  - Lower gastrointestinal haemorrhage [Fatal]

NARRATIVE: CASE EVENT DATE: 20130826
